FAERS Safety Report 16991509 (Version 1)
Quarter: 2019Q4

REPORT INFORMATION
  Report Type: Spontaneous
  Country: MX (occurrence: MX)
  Receive Date: 20191104
  Receipt Date: 20191104
  Transmission Date: 20200122
  Serious: Yes (Other)
  Sender: FDA-Public Use
  Company Number: PHHY2019MX148020

PATIENT
  Age: 1 Year
  Sex: Male
  Weight: 15 kg

DRUGS (2)
  1. MEGION [Suspect]
     Active Substance: CEFTRIAXONE SODIUM
     Indication: PHARYNGITIS
     Dosage: 500 MG UNK
     Route: 065
     Dates: start: 20190619, end: 20190619
  2. NIMESULIDE [Concomitant]
     Active Substance: NIMESULIDE
     Indication: PYREXIA
     Dosage: 2.5 UNK, Q12H
     Route: 048

REACTIONS (7)
  - Wound [Recovered/Resolved]
  - Dysuria [Unknown]
  - Dyschezia [Unknown]
  - Diarrhoea [Recovered/Resolved]
  - Ulcer haemorrhage [Recovered/Resolved]
  - Skin ulcer [Recovered/Resolved]
  - Rash [Not Recovered/Not Resolved]

NARRATIVE: CASE EVENT DATE: 20190619
